FAERS Safety Report 25931225 (Version 3)
Quarter: 2025Q4

REPORT INFORMATION
  Report Type: Report from Study
  Country: CA (occurrence: CA)
  Receive Date: 20251016
  Receipt Date: 20251226
  Transmission Date: 20260118
  Serious: Yes (Hospitalization, Other)
  Sender: TAKEDA
  Company Number: CA-TAKEDA-2025TUS088863

PATIENT
  Age: 61 Year
  Sex: Male

DRUGS (4)
  1. VEDOLIZUMAB [Suspect]
     Active Substance: VEDOLIZUMAB
     Indication: Colitis ulcerative
     Dosage: 300 MILLIGRAM
  2. VEDOLIZUMAB [Suspect]
     Active Substance: VEDOLIZUMAB
     Dosage: 300 MILLIGRAM
  3. PREDNISONE [Concomitant]
     Active Substance: PREDNISONE
     Dosage: UNK
  4. IRON [Concomitant]
     Active Substance: IRON
     Dosage: UNK

REACTIONS (6)
  - Rectal haemorrhage [Unknown]
  - Diarrhoea [Unknown]
  - Defaecation urgency [Unknown]
  - Frequent bowel movements [Unknown]
  - Treatment failure [Unknown]
  - Decreased appetite [Unknown]

NARRATIVE: CASE EVENT DATE: 20251029
